FAERS Safety Report 9515678 (Version 2)
Quarter: 2015Q1

REPORT INFORMATION
  Report Type: Spontaneous
  Country: US (occurrence: US)
  Receive Date: 20130911
  Receipt Date: 20150212
  Transmission Date: 20150721
  Serious: Yes (Disabling, Other)
  Sender: FDA-Public Use
  Company Number: US-009507513-1309USA003612

PATIENT
  Sex: Female

DRUGS (1)
  1. FOSAMAX [Suspect]
     Active Substance: ALENDRONATE SODIUM
     Indication: OSTEOPOROSIS
     Dosage: UNK
     Route: 048
     Dates: start: 2000, end: 201301

REACTIONS (7)
  - Diabetes mellitus [Unknown]
  - Gastrooesophageal reflux disease [Unknown]
  - Impaired healing [Unknown]
  - Femur fracture [Not Recovered/Not Resolved]
  - Limb injury [Unknown]
  - Basal cell carcinoma [Unknown]
  - Tooth infection [Unknown]

NARRATIVE: CASE EVENT DATE: 2000
